FAERS Safety Report 21581280 (Version 1)
Quarter: 2022Q4

REPORT INFORMATION
  Report Type: Spontaneous
  Country: EG (occurrence: EG)
  Receive Date: 20221111
  Receipt Date: 20221111
  Transmission Date: 20230113
  Serious: Yes (Other)
  Sender: FDA-Public Use
  Company Number: None

PATIENT
  Age: 62 Year
  Sex: Female
  Weight: 90 kg

DRUGS (3)
  1. ALTEPLASE [Suspect]
     Active Substance: ALTEPLASE
     Indication: Product used for unknown indication
     Dosage: OVER 60MIN
     Route: 042
  2. ALTEPLASE [Suspect]
     Active Substance: ALTEPLASE
     Dosage: WITH 10% OF THE DOSE GIVE AS BOLUS OVER 7MIN
     Route: 040
  3. AMLODIPINE BESYLATE [Concomitant]
     Active Substance: AMLODIPINE BESYLATE
     Indication: Product used for unknown indication

REACTIONS (2)
  - Oral disorder [Recovered/Resolved]
  - Dysarthria [Recovered/Resolved]
